FAERS Safety Report 9411456 (Version 1)
Quarter: 2013Q3

REPORT INFORMATION
  Report Type: Spontaneous
  Country: US (occurrence: US)
  Receive Date: 20130722
  Receipt Date: 20130722
  Transmission Date: 20140515
  Serious: No
  Sender: FDA-Public Use
  Company Number: US-009507513-1307USA008861

PATIENT
  Age: 67 Year
  Sex: Female

DRUGS (1)
  1. VICTRELIS [Suspect]
     Indication: HEPATITIS C
     Dosage: FREQUENCY: TAKE 4 CAPSULES BY MOUTH THREE TIMES A DAY EVERY 7 TO 9 HOURS.
     Route: 048
     Dates: start: 201306

REACTIONS (3)
  - Pneumonia [Unknown]
  - Anxiety [Unknown]
  - Nausea [Unknown]
